FAERS Safety Report 5017744-3 (Version None)
Quarter: 2006Q2

REPORT INFORMATION
  Report Type: 
  Country: None (occurrence: None)
  Receive Date: 20060605
  Receipt Date: 20060529
  Transmission Date: 20061013
  Serious: Yes (Other)
  Sender: FDA-Public Use
  Company Number: PHBS2006HU07787

PATIENT
  Age: 56 Year
  Sex: Male
  Weight: 85 kg

DRUGS (10)
  1. LESCOL XL [Suspect]
     Indication: HYPERCHOLESTEROLAEMIA
     Dosage: 80 MG/DAY
     Route: 048
     Dates: start: 20050921, end: 20060519
  2. CYCLOSPORINE [Concomitant]
  3. CELLCEPT [Concomitant]
  4. FURON [Concomitant]
  5. NORMODIPIN [Concomitant]
  6. MILURIT [Concomitant]
  7. VITAMIN E [Concomitant]
  8. BETALOC ZOK [Concomitant]
  9. SANDIMMUNE [Concomitant]
  10. EZETROL [Concomitant]
     Dates: start: 20060316

REACTIONS (4)
  - ASTHENIA [None]
  - BLOOD CREATINE PHOSPHOKINASE INCREASED [None]
  - BLOOD CREATININE INCREASED [None]
  - MUSCLE SPASMS [None]
